FAERS Safety Report 16635446 (Version 2)
Quarter: 2019Q3

REPORT INFORMATION
  Report Type: Spontaneous
  Country: US (occurrence: US)
  Receive Date: 20190726
  Receipt Date: 20190925
  Transmission Date: 20191004
  Serious: No
  Sender: FDA-Public Use
  Company Number: US-ASTRAZENECA-2019SF03929

PATIENT
  Age: 22064 Day
  Sex: Male
  Weight: 113.4 kg

DRUGS (1)
  1. BYDUREON BCISE [Suspect]
     Active Substance: EXENATIDE
     Indication: TYPE 2 DIABETES MELLITUS
     Route: 058

REACTIONS (4)
  - Wrong technique in product usage process [Recovering/Resolving]
  - Device leakage [Unknown]
  - Pain in extremity [Unknown]
  - Injection site mass [Unknown]

NARRATIVE: CASE EVENT DATE: 20190404
